FAERS Safety Report 25525417 (Version 1)
Quarter: 2025Q3

REPORT INFORMATION
  Report Type: Spontaneous
  Country: US (occurrence: US)
  Receive Date: 20250707
  Receipt Date: 20250707
  Transmission Date: 20251020
  Serious: Yes (Hospitalization)
  Sender: MYLAN
  Company Number: US-MYLANLABS-2025M1055372

PATIENT
  Age: 69 Year
  Sex: Female

DRUGS (16)
  1. HALOPERIDOL [Suspect]
     Active Substance: HALOPERIDOL
     Indication: Schizophrenia
     Dosage: 200 MILLIGRAM, Q3W
  2. HALOPERIDOL [Suspect]
     Active Substance: HALOPERIDOL
     Dosage: 200 MILLIGRAM, Q3W
  3. HALOPERIDOL [Suspect]
     Active Substance: HALOPERIDOL
     Dosage: 200 MILLIGRAM, Q3W
     Route: 065
  4. HALOPERIDOL [Suspect]
     Active Substance: HALOPERIDOL
     Dosage: 200 MILLIGRAM, Q3W
     Route: 065
  5. HALOPERIDOL [Suspect]
     Active Substance: HALOPERIDOL
  6. HALOPERIDOL [Suspect]
     Active Substance: HALOPERIDOL
  7. HALOPERIDOL [Suspect]
     Active Substance: HALOPERIDOL
     Route: 065
  8. HALOPERIDOL [Suspect]
     Active Substance: HALOPERIDOL
     Route: 065
  9. LORAZEPAM [Suspect]
     Active Substance: LORAZEPAM
     Indication: Schizophrenia
     Dosage: 1 MILLIGRAM, BID
  10. LORAZEPAM [Suspect]
     Active Substance: LORAZEPAM
     Dosage: 1 MILLIGRAM, BID
     Route: 065
  11. LORAZEPAM [Suspect]
     Active Substance: LORAZEPAM
     Dosage: 1 MILLIGRAM, BID
     Route: 065
  12. LORAZEPAM [Suspect]
     Active Substance: LORAZEPAM
     Dosage: 1 MILLIGRAM, BID
  13. BENZTROPINE [Suspect]
     Active Substance: BENZTROPINE
     Indication: Drug therapy
     Dosage: 1 MILLIGRAM, HS,  AT BEDTIME
  14. BENZTROPINE [Suspect]
     Active Substance: BENZTROPINE
     Dosage: 1 MILLIGRAM, HS,  AT BEDTIME
     Route: 065
  15. BENZTROPINE [Suspect]
     Active Substance: BENZTROPINE
     Dosage: 1 MILLIGRAM, HS,  AT BEDTIME
     Route: 065
  16. BENZTROPINE [Suspect]
     Active Substance: BENZTROPINE
     Dosage: 1 MILLIGRAM, HS,  AT BEDTIME

REACTIONS (3)
  - Therapy non-responder [Unknown]
  - Cognitive disorder [Unknown]
  - Off label use [Unknown]
